FAERS Safety Report 5309530-1 (Version None)
Quarter: 2007Q2

REPORT INFORMATION
  Report Type: 
  Country: None (occurrence: None)
  Receive Date: 20070427
  Receipt Date: 20060817
  Transmission Date: 20071010
  Serious: No
  Sender: FDA-Public Use
  Company Number: US-GLAXOSMITHKLINE-A0617118A

PATIENT
  Sex: Male

DRUGS (3)
  1. DEXEDRINE [Suspect]
     Indication: DRUG USE FOR UNKNOWN INDICATION
     Dosage: 5MG UNKNOWN
     Route: 048
     Dates: start: 20040101
  2. DEXTROAMPHETAMINE SULFATE [Suspect]
     Indication: DRUG USE FOR UNKNOWN INDICATION
     Dosage: 5MG UNKNOWN
     Route: 048
  3. LIPITOR [Concomitant]

REACTIONS (5)
  - ENLARGED UVULA [None]
  - PALATAL OEDEMA [None]
  - PRODUCTIVE COUGH [None]
  - RETCHING [None]
  - WHEEZING [None]
